FAERS Safety Report 18991103 (Version 1)
Quarter: 2021Q1

REPORT INFORMATION
  Report Type: Spontaneous
  Country: JP (occurrence: JP)
  Receive Date: 20210310
  Receipt Date: 20210310
  Transmission Date: 20210420
  Serious: Yes (Other)
  Sender: FDA-Public Use
  Company Number: JP-JNJFOC-20210316825

PATIENT
  Sex: Male

DRUGS (3)
  1. INVEGA [Suspect]
     Active Substance: PALIPERIDONE
     Indication: SCHIZOPHRENIA
     Dosage: DOSE UNKNOWN
     Route: 048
  2. INVEGA [Suspect]
     Active Substance: PALIPERIDONE
     Dosage: IN THE MORNING
     Route: 048
  3. INVEGA [Suspect]
     Active Substance: PALIPERIDONE
     Route: 048

REACTIONS (2)
  - Withdrawal syndrome [Unknown]
  - Adverse reaction [Unknown]
